FAERS Safety Report 5014777-8 (Version None)
Quarter: 2006Q2

REPORT INFORMATION
  Report Type: 
  Country: None (occurrence: None)
  Receive Date: 20060531
  Receipt Date: 20060523
  Transmission Date: 20061013
  Serious: Yes (Hospitalization)
  Sender: FDA-Public Use
  Company Number: ES-AVENTIS-200615545GDDC

PATIENT
  Age: 80 Year
  Sex: Male

DRUGS (4)
  1. DAONIL [Suspect]
     Route: 048
     Dates: end: 20060421
  2. CAPTOPRIL [Suspect]
     Route: 048
  3. CARDYL [Concomitant]
  4. TROMALYT [Concomitant]

REACTIONS (1)
  - HYPOGLYCAEMIA [None]
